FAERS Safety Report 13698644 (Version 2)
Quarter: 2017Q3

REPORT INFORMATION
  Report Type: Report from Study
  Country: US (occurrence: US)
  Receive Date: 20170628
  Receipt Date: 20170707
  Transmission Date: 20171127
  Serious: Yes (Hospitalization)
  Sender: FDA-Public Use
  Company Number: US-ACTELION-A-US2017-155843

PATIENT
  Age: 77 Year
  Sex: Male
  Weight: 68.48 kg

DRUGS (3)
  1. ELIQUIS [Concomitant]
     Active Substance: APIXABAN
  2. SILDENAFIL CITRATE. [Concomitant]
     Active Substance: SILDENAFIL CITRATE
  3. OPSUMIT [Suspect]
     Active Substance: MACITENTAN
     Indication: PULMONARY ARTERIAL HYPERTENSION
     Dosage: 10 MG, QD
     Route: 048
     Dates: start: 201601

REACTIONS (8)
  - Chills [Unknown]
  - Back pain [Unknown]
  - Mass [Unknown]
  - Bacterial infection [Unknown]
  - Leukocytosis [Unknown]
  - Product contamination microbial [Unknown]
  - Back injury [Unknown]
  - Pyrexia [Unknown]
